FAERS Safety Report 6563367-4 (Version None)
Quarter: 2010Q1

REPORT INFORMATION
  Report Type: 
  Country: None (occurrence: None)
  Receive Date: 20100130
  Receipt Date: 20091215
  Transmission Date: 20100710
  Serious: No
  Sender: FDA-Public Use
  Company Number: US-ABBOTT-09P-163-0615596-00

PATIENT
  Sex: Female

DRUGS (3)
  1. HUMIRA [Suspect]
     Indication: CROHN'S DISEASE
     Route: 058
     Dates: start: 20081101
  2. PENTASA [Concomitant]
     Indication: CROHN'S DISEASE
     Dosage: 500MG
     Route: 048
  3. VITAMIN TAB [Concomitant]
     Indication: PREGNANCY

REACTIONS (3)
  - CROHN'S DISEASE [None]
  - DIARRHOEA [None]
  - MALNUTRITION [None]
